FAERS Safety Report 7606867-8 (Version None)
Quarter: 2011Q3

REPORT INFORMATION
  Report Type: 
  Country: None (occurrence: None)
  Receive Date: 20110713
  Receipt Date: 20110704
  Transmission Date: 20111222
  Serious: Yes (Hospitalization, Disabling)
  Sender: FDA-Public Use
  Company Number: JP-GLAXOSMITHKLINE-B0706762A

PATIENT
  Sex: Male

DRUGS (7)
  1. DANAZOL [Concomitant]
     Indication: IDIOPATHIC THROMBOCYTOPENIC PURPURA
     Dosage: 200MG PER DAY
     Route: 048
     Dates: start: 20110222
  2. FERROUS CITRATE [Concomitant]
     Indication: IRON DEFICIENCY ANAEMIA
     Dosage: 100MG PER DAY
     Route: 048
     Dates: start: 20101126, end: 20110214
  3. OMEPRAZOLE [Suspect]
     Indication: GASTROOESOPHAGEAL REFLUX DISEASE
     Dosage: 20MG PER DAY
     Route: 048
     Dates: start: 20110224
  4. PREDNISOLONE [Suspect]
     Indication: IDIOPATHIC THROMBOCYTOPENIC PURPURA
     Route: 048
     Dates: start: 20110113
  5. LOXONIN [Suspect]
     Indication: SPINAL COMPRESSION FRACTURE
     Dosage: 180MG PER DAY
     Route: 048
     Dates: start: 20110301
  6. PROMACTA [Suspect]
     Indication: IDIOPATHIC THROMBOCYTOPENIC PURPURA
     Dosage: 37.5MG PER DAY
     Route: 048
     Dates: start: 20110210, end: 20110424
  7. ALENDRONATE SODIUM [Suspect]
     Indication: OSTEOPOROSIS
     Dosage: 35MG WEEKLY
     Route: 048
     Dates: start: 20110225

REACTIONS (4)
  - THROMBOCYTOPENIA [None]
  - ANAEMIA [None]
  - LUMBAR VERTEBRAL FRACTURE [None]
  - APLASTIC ANAEMIA [None]
